FAERS Safety Report 6544513-5 (Version None)
Quarter: 2010Q1

REPORT INFORMATION
  Report Type: 
  Country: None (occurrence: None)
  Receive Date: 20100120
  Receipt Date: 20100120
  Transmission Date: 20100710
  Serious: No
  Sender: FDA-Public Use
  Company Number: None

PATIENT
  Age: 46 Year
  Sex: Male
  Weight: 108.3 kg

DRUGS (2)
  1. WARFARIN SODIUM [Suspect]
     Indication: AORTIC VALVE REPLACEMENT
     Dosage: 4 MG DAILY PO
     Route: 048
     Dates: start: 20060910, end: 20100118
  2. ASPIRIN [Suspect]
     Dosage: 81 MG DAILY PO
     Route: 048
     Dates: start: 20060910, end: 20100118

REACTIONS (2)
  - HAEMORRHAGE INTRACRANIAL [None]
  - UNRESPONSIVE TO STIMULI [None]
